FAERS Safety Report 6543677-7 (Version None)
Quarter: 2010Q1

REPORT INFORMATION
  Report Type: 
  Country: None (occurrence: None)
  Receive Date: 20100120
  Receipt Date: 20100115
  Transmission Date: 20100710
  Serious: Yes (Other)
  Sender: FDA-Public Use
  Company Number: ES-SANOFI-AVENTIS-2010SA002748

PATIENT
  Age: 76 Year
  Sex: Female

DRUGS (6)
  1. SEGURIL [Suspect]
     Indication: HYPERTENSION
     Route: 048
  2. AMIODARONE HCL [Suspect]
     Indication: ARRHYTHMIA
  3. ACETYLSALICYLIC ACID [Suspect]
     Indication: PROPHYLAXIS
     Route: 048
     Dates: start: 20090101
  4. CARDYL [Suspect]
     Route: 048
     Dates: start: 20080101
  5. COROPRES [Suspect]
     Indication: CARDIAC DISORDER
     Route: 048
     Dates: start: 20090101
  6. EPOETIN BETA [Suspect]
     Indication: ANAEMIA
     Route: 058
     Dates: start: 20090101

REACTIONS (1)
  - HEPATITIS ACUTE [None]
